FAERS Safety Report 11062536 (Version 1)
Quarter: 2015Q2

REPORT INFORMATION
  Report Type: Spontaneous
  Country: JP (occurrence: JP)
  Receive Date: 20150424
  Receipt Date: 20150424
  Transmission Date: 20150821
  Serious: Yes (Hospitalization, Other)
  Sender: FDA-Public Use
  Company Number: JP-ACTAVIS-2015-08186

PATIENT
  Age: 80 Year
  Sex: Male

DRUGS (4)
  1. DOCETAXEL (UNKNOWN) [Suspect]
     Active Substance: DOCETAXEL
     Dosage: 15 MG, CYCLICAL
     Route: 065
  2. DOCETAXEL (UNKNOWN) [Suspect]
     Active Substance: DOCETAXEL
     Indication: PROSTATE CANCER
     Dosage: 80 MG, CYCLICAL, 2 COURSES
     Route: 065
     Dates: start: 201208
  3. DOCETAXEL (UNKNOWN) [Suspect]
     Active Substance: DOCETAXEL
     Dosage: 60 MG, CYCLICAL, 2 COURSES
     Route: 065
  4. PREDNISOLONE. [Concomitant]
     Active Substance: PREDNISOLONE
     Indication: PAIN
     Dosage: 4 MG, UNK
     Route: 065
     Dates: start: 201302

REACTIONS (4)
  - Portal venous gas [Recovered/Resolved]
  - Diarrhoea [Unknown]
  - Vomiting [Unknown]
  - Pneumatosis intestinalis [Recovered/Resolved]

NARRATIVE: CASE EVENT DATE: 201303
